FAERS Safety Report 8549881-0 (Version None)
Quarter: 2012Q3

REPORT INFORMATION
  Report Type: 
  Country: None (occurrence: None)
  Receive Date: 20120730
  Receipt Date: 20111115
  Transmission Date: 20120928
  Serious: No
  Sender: FDA-Public Use
  Company Number: US-GLAXOSMITHKLINE-A0953117A

PATIENT
  Age: 40 Year
  Sex: Female

DRUGS (3)
  1. TYLENOL (CAPLET) [Concomitant]
  2. IMITREX [Suspect]
     Route: 042
     Dates: start: 19930101
  3. IMITREX [Suspect]
     Indication: MIGRAINE
     Route: 048
     Dates: start: 19930101

REACTIONS (1)
  - DRUG INEFFECTIVE [None]
